FAERS Safety Report 11625098 (Version 2)
Quarter: 2015Q4

REPORT INFORMATION
  Report Type: Spontaneous
  Country: US (occurrence: US)
  Receive Date: 20151013
  Receipt Date: 20151109
  Transmission Date: 20160304
  Serious: Yes (Death, Hospitalization, Other)
  Sender: FDA-Public Use
  Company Number: US-ASTELLAS-2015US037095

PATIENT
  Age: 73 Year
  Sex: Male

DRUGS (1)
  1. XTANDI [Suspect]
     Active Substance: ENZALUTAMIDE
     Indication: PROSTATIC SPECIFIC ANTIGEN INCREASED
     Dosage: UNK UNK, UNKNOWN FREQ.
     Route: 065
     Dates: end: 201504

REACTIONS (3)
  - Laryngeal cancer [Fatal]
  - Wrong technique in product usage process [Unknown]
  - Off label use [Unknown]
